FAERS Safety Report 21038883 (Version 1)
Quarter: 2022Q3

REPORT INFORMATION
  Report Type: Spontaneous
  Country: CA (occurrence: CA)
  Receive Date: 20220704
  Receipt Date: 20220704
  Transmission Date: 20221027
  Serious: Yes (Other)
  Sender: FDA-Public Use
  Company Number: CA-ABBVIE-22K-028-4449780-00

PATIENT
  Age: 43 Year
  Sex: Male
  Weight: 91 kg

DRUGS (16)
  1. HUMIRA [Suspect]
     Active Substance: ADALIMUMAB
     Indication: Product used for unknown indication
     Route: 058
  2. INFLECTRA [Suspect]
     Active Substance: INFLIXIMAB-DYYB
     Indication: Crohn^s disease
     Dosage: 0, 2, 6 WEEKS, THEN EVERY 8 WEEKS
     Route: 042
     Dates: start: 20211006
  3. INFLECTRA [Suspect]
     Active Substance: INFLIXIMAB-DYYB
     Route: 042
  4. INFLECTRA [Suspect]
     Active Substance: INFLIXIMAB-DYYB
     Route: 042
  5. INFLECTRA [Suspect]
     Active Substance: INFLIXIMAB-DYYB
     Route: 042
  6. INFLECTRA [Suspect]
     Active Substance: INFLIXIMAB-DYYB
     Route: 042
  7. COVID-19 VACCINE NOS [Suspect]
     Active Substance: COVID-19 VACCINE NOS
     Indication: COVID-19 prophylaxis
     Dosage: FIRST DOSE
     Route: 030
     Dates: start: 2021, end: 2021
  8. COVID-19 VACCINE NOS [Suspect]
     Active Substance: COVID-19 VACCINE NOS
     Dosage: SECOND DOSE
     Route: 030
     Dates: start: 2021, end: 2021
  9. COVID-19 VACCINE NOS [Suspect]
     Active Substance: COVID-19 VACCINE NOS
     Dosage: BOOSTER DOSE
     Route: 030
     Dates: start: 2021, end: 2021
  10. PREGABALIN [Concomitant]
     Active Substance: PREGABALIN
     Indication: Crohn^s disease
  11. FOLIC ACID [Concomitant]
     Active Substance: FOLIC ACID
     Indication: Crohn^s disease
  12. VITAMIN D [Concomitant]
     Active Substance: VITAMIN D NOS
     Indication: Crohn^s disease
  13. PREDNISONE [Concomitant]
     Active Substance: PREDNISONE
     Indication: Product used for unknown indication
  14. PREDNISONE [Concomitant]
     Active Substance: PREDNISONE
  15. PREDNISONE [Concomitant]
     Active Substance: PREDNISONE
     Dates: start: 202201, end: 202201
  16. METHOTREXATE [Concomitant]
     Active Substance: METHOTREXATE
     Indication: Product used for unknown indication

REACTIONS (32)
  - Colitis microscopic [Unknown]
  - Melanocytic naevus [Unknown]
  - Abnormal faeces [Recovering/Resolving]
  - Fistula [Not Recovered/Not Resolved]
  - Fistula discharge [Not Recovered/Not Resolved]
  - Wound haemorrhage [Unknown]
  - Condition aggravated [Unknown]
  - Therapeutic response unexpected [Recovering/Resolving]
  - Rheumatoid arthritis [Unknown]
  - Ankylosing spondylitis [Unknown]
  - General physical health deterioration [Unknown]
  - Enthesopathy [Unknown]
  - Tendonitis [Unknown]
  - Nervous system disorder [Unknown]
  - Anal fissure [Unknown]
  - Anal fissure [Unknown]
  - Therapeutic response unexpected [Recovered/Resolved]
  - Weight increased [Unknown]
  - Faecal calprotectin [Unknown]
  - Wound complication [Not Recovered/Not Resolved]
  - Hypoaesthesia [Unknown]
  - Hypoaesthesia [Unknown]
  - Abdominal pain [Unknown]
  - Gastrointestinal pain [Recovering/Resolving]
  - Muscular weakness [Unknown]
  - Peripheral swelling [Recovering/Resolving]
  - Therapeutic product effect decreased [Unknown]
  - Unevaluable event [Unknown]
  - Faeces soft [Unknown]
  - Diarrhoea [Unknown]
  - Therapeutic product effect decreased [Unknown]
  - Psoriasis [Recovered/Resolved]

NARRATIVE: CASE EVENT DATE: 20210101
